FAERS Safety Report 5314475-7 (Version None)
Quarter: 2007Q2

REPORT INFORMATION
  Report Type: 
  Country: None (occurrence: None)
  Receive Date: 20070502
  Receipt Date: 20070219
  Transmission Date: 20071010
  Serious: No
  Sender: FDA-Public Use
  Company Number: US-GLAXOSMITHKLINE-A0640099A

PATIENT
  Sex: Female

DRUGS (3)
  1. WELLBUTRIN XL [Suspect]
     Indication: DEPRESSION
     Dosage: 150MG PER DAY
     Route: 048
     Dates: start: 20061201
  2. AMOXICILLIN [Suspect]
     Indication: TOOTH ABSCESS
     Route: 048
     Dates: end: 20070208
  3. SEROQUEL [Concomitant]

REACTIONS (4)
  - EYE SWELLING [None]
  - LIP SWELLING [None]
  - MENSTRUATION IRREGULAR [None]
  - RASH [None]
